FAERS Safety Report 16971966 (Version 1)
Quarter: 2019Q4

REPORT INFORMATION
  Report Type: Report from Study
  Country: BE (occurrence: BE)
  Receive Date: 20191029
  Receipt Date: 20191029
  Transmission Date: 20200122
  Serious: Yes (Hospitalization, Other)
  Sender: FDA-Public Use
  Company Number: BE-PFIZER INC-2019463980

PATIENT
  Age: 74 Year
  Sex: Female
  Weight: 69 kg

DRUGS (29)
  1. LEUCOVORIN [FOLINIC ACID] [Suspect]
     Active Substance: LEUCOVORIN
     Indication: COLORECTAL CANCER
     Dosage: 1 UNK, CYCLIC (EVERY TWO WEEKS (15 CYCLES))
     Route: 042
     Dates: start: 20150827, end: 20160523
  2. LEUCOVORIN [FOLINIC ACID] [Suspect]
     Active Substance: LEUCOVORIN
     Dosage: 3400 MG, CYCLIC (EVERY TWO WEEKS)
     Route: 042
     Dates: start: 20160725
  3. DAFALGAN FORTE [Concomitant]
     Dosage: UNK
     Route: 065
     Dates: start: 20161010, end: 20161022
  4. ATORVASTATIN [Concomitant]
     Active Substance: ATORVASTATIN
  5. VENLAFAXINE [Concomitant]
     Active Substance: VENLAFAXINE HYDROCHLORIDE
     Dosage: UNK
     Route: 065
     Dates: end: 20160803
  6. DORMONOCT [Concomitant]
     Active Substance: LOPRAZOLAM
     Dosage: UNK
     Route: 065
     Dates: start: 20160509
  7. BEFACT [CYANOCOBALAMIN;PYRIDOXINE HYDROCHLORIDE;RIBOFLAVIN;THIAMINE MO [Concomitant]
     Active Substance: CYANOCOBALAMIN\PYRIDOXINE\RIBOFLAVIN\THIAMINE
     Dosage: UNK
     Route: 065
     Dates: start: 20160803, end: 20160818
  8. ZALDIAR [Concomitant]
     Active Substance: ACETAMINOPHEN\TRAMADOL HYDROCHLORIDE
     Dosage: UNK
     Route: 065
     Dates: start: 20160509
  9. IRINOTECAN HCL [Suspect]
     Active Substance: IRINOTECAN HYDROCHLORIDE
     Dosage: 1 UNK, CYCLIC (EVERY TWO WEEKS)
     Route: 042
     Dates: start: 20160816, end: 20160907
  10. 5-FU [FLUOROURACIL] [Suspect]
     Active Substance: FLUOROURACIL
     Dosage: 1 UNK, CYCLIC (EVERY TWO WEEKS)
     Route: 042
     Dates: start: 20160816, end: 20160907
  11. CALCIUM CARBONATE. [Concomitant]
     Active Substance: CALCIUM CARBONATE
  12. L-THYROXINE [LEVOTHYROXINE] [Concomitant]
     Active Substance: LEVOTHYROXINE
  13. TRAMADOL. [Concomitant]
     Active Substance: TRAMADOL
     Dosage: UNK
     Route: 065
     Dates: start: 20160804, end: 20160806
  14. STAURODORM [FLURAZEPAM] [Concomitant]
     Dosage: UNK
     Route: 065
     Dates: start: 20160811, end: 20160817
  15. VENLAFAXINE [Concomitant]
     Active Substance: VENLAFAXINE HYDROCHLORIDE
     Dosage: UNK
     Route: 065
     Dates: end: 20160803
  16. DAFALGAN [Concomitant]
     Active Substance: ACETAMINOPHEN
     Dosage: UNK
     Route: 065
     Dates: start: 20150820, end: 20160803
  17. CORDARONE [Concomitant]
     Active Substance: AMIODARONE HYDROCHLORIDE
  18. PERINDOPRIL [Concomitant]
     Active Substance: PERINDOPRIL
     Dosage: UNK
  19. RIVOTRIL [Concomitant]
     Active Substance: CLONAZEPAM
     Dosage: UNK
  20. IRINOTECAN HCL [Suspect]
     Active Substance: IRINOTECAN HYDROCHLORIDE
     Indication: COLORECTAL CANCER
     Dosage: 310 MG, CYCLIC (EVERY TWO WEEKS)
     Route: 042
     Dates: start: 20160725, end: 20160727
  21. BEVACIZUMAB. [Suspect]
     Active Substance: BEVACIZUMAB
     Indication: COLORECTAL CANCER
     Dosage: UNK, CYCLIC (1 EVERY 2 WEEKS, 11 CYCLES)
     Route: 042
     Dates: start: 20151109, end: 20160523
  22. 5-FU [FLUOROURACIL] [Suspect]
     Active Substance: FLUOROURACIL
     Dosage: 3400 MG, CYCLIC (EVERY TWO WEEKS)
     Route: 042
     Dates: start: 20160725, end: 20160727
  23. BEVACIZUMAB. [Suspect]
     Active Substance: BEVACIZUMAB
     Dosage: 350 MG, CYCLIC (EVERY 2 WEEKS)
     Route: 042
     Dates: start: 20160725
  24. IRINOTECAN HCL [Suspect]
     Active Substance: IRINOTECAN HYDROCHLORIDE
     Dosage: 1 UNK, CYCLIC (EVERY TWO WEEKS)
     Route: 042
     Dates: start: 20160926
  25. 5-FU [FLUOROURACIL] [Suspect]
     Active Substance: FLUOROURACIL
     Indication: COLORECTAL CANCER
     Dosage: 1 UNK, CYCLIC (EVERY TWO WEEKS (15 CYCLES))
     Route: 042
     Dates: start: 20150827, end: 20160523
  26. DUPHALAC [Concomitant]
     Active Substance: LACTULOSE
     Indication: CONSTIPATION
     Dosage: UNK
     Route: 065
     Dates: start: 20160804, end: 20160806
  27. XANAX [Concomitant]
     Active Substance: ALPRAZOLAM
     Dosage: UNK
     Route: 065
     Dates: start: 20160808
  28. TRAZODONE [Concomitant]
     Active Substance: TRAZODONE HYDROCHLORIDE
     Dosage: UNK
     Route: 065
     Dates: end: 20160802
  29. 5-FU [FLUOROURACIL] [Suspect]
     Active Substance: FLUOROURACIL
     Dosage: 1 UNK, CYCLIC (EVERY TWO WEEKS)
     Route: 042
     Dates: start: 20160926

REACTIONS (12)
  - Decreased appetite [Recovered/Resolved]
  - Mucosal inflammation [Recovered/Resolved]
  - Urinary tract infection [Recovered/Resolved]
  - Nausea [Recovered/Resolved]
  - Pyrexia [Recovered/Resolved]
  - Febrile neutropenia [Recovered/Resolved]
  - Sinus bradycardia [Recovered/Resolved]
  - Thrombocytopenia [Recovered/Resolved]
  - Diarrhoea [Recovered/Resolved]
  - Hypokalaemia [Recovered/Resolved]
  - Bile duct stenosis [Not Recovered/Not Resolved]
  - Anaemia [Recovered/Resolved with Sequelae]

NARRATIVE: CASE EVENT DATE: 201608
